FAERS Safety Report 8434924-5 (Version None)
Quarter: 2012Q2

REPORT INFORMATION
  Report Type: 
  Country: None (occurrence: None)
  Receive Date: 20120614
  Receipt Date: 20120608
  Transmission Date: 20120825
  Serious: No
  Sender: FDA-Public Use
  Company Number: US-PFIZER INC-2012138618

PATIENT
  Sex: Female
  Weight: 99.773 kg

DRUGS (6)
  1. LOSARTAN [Concomitant]
     Indication: HYPERTENSION
     Dosage: 25 MG, DAILY
  2. REVATIO [Suspect]
     Indication: PULMONARY HYPERTENSION
     Dosage: 20 MG, 6X/DAY
     Route: 048
  3. REVATIO [Suspect]
     Indication: RAYNAUD'S PHENOMENON
     Dosage: 20 MG, 3X/DAY
     Route: 048
  4. PROCARDIA XL [Concomitant]
     Indication: HYPERTENSION
     Dosage: 30 MG, DAILY
     Route: 048
     Dates: start: 20050101
  5. WARFARIN [Concomitant]
     Indication: RAYNAUD'S PHENOMENON
     Dosage: 5 MG, DAILY
  6. PROCARDIA XL [Concomitant]
     Indication: RAYNAUD'S PHENOMENON

REACTIONS (1)
  - DRUG INTOLERANCE [None]
